FAERS Safety Report 4727393-X (Version None)
Quarter: 2005Q3

REPORT INFORMATION
  Report Type: 
  Country: None (occurrence: None)
  Receive Date: 20050727
  Receipt Date: 20050727
  Transmission Date: 20060218
  Serious: Yes (Hospitalization)
  Sender: FDA-Public Use
  Company Number: None

PATIENT
  Age: 74 Year
  Sex: Male
  Weight: 48.5349 kg

DRUGS (17)
  1. WARFARIN [Suspect]
     Indication: THROMBOSIS PROPHYLAXIS
     Dosage: 5 MG PO DAILY
     Route: 048
  2. ALPRAZOLAM [Concomitant]
  3. BUSPAR [Concomitant]
  4. TRAZODONE HCL [Concomitant]
  5. REMERON [Concomitant]
  6. ABILIFY [Concomitant]
  7. GEMFIBROZIL [Concomitant]
  8. FLOMAX [Concomitant]
  9. LAMICTAL [Concomitant]
  10. AMBIEN [Concomitant]
  11. DARVOCET [Concomitant]
  12. VIT C + E [Concomitant]
  13. M.V.I. [Concomitant]
  14. GLUCOSAMINE [Concomitant]
  15. COLACE [Concomitant]
  16. SENOKOT [Concomitant]
  17. COENZYME [Concomitant]

REACTIONS (4)
  - HAEMATEMESIS [None]
  - HAEMORRHOIDAL HAEMORRHAGE [None]
  - LOWER GASTROINTESTINAL HAEMORRHAGE [None]
  - UPPER GASTROINTESTINAL HAEMORRHAGE [None]
